FAERS Safety Report 5258301-3 (Version None)
Quarter: 2007Q1

REPORT INFORMATION
  Report Type: 
  Country: None (occurrence: None)
  Receive Date: 20070306
  Receipt Date: 20070306
  Transmission Date: 20070707
  Serious: Yes (Hospitalization)
  Sender: FDA-Public Use
  Company Number: None

PATIENT
  Age: 16 Year
  Sex: Male
  Weight: 47.6277 kg

DRUGS (1)
  1. MERCAPTOPURINE [Suspect]
     Indication: LEUKAEMIA
     Dosage: 100 MG (50 MG X 2) ONCE DAY PO
     Route: 048
     Dates: start: 20060201, end: 20060901

REACTIONS (3)
  - DRUG TOXICITY [None]
  - PANCREATIC NECROSIS [None]
  - PANCREATITIS [None]
